FAERS Safety Report 9438502 (Version 1)
Quarter: 2013Q3

REPORT INFORMATION
  Report Type: Spontaneous
  Country: GB (occurrence: GB)
  Receive Date: 20130802
  Receipt Date: 20130802
  Transmission Date: 20140515
  Serious: Yes (Other)
  Sender: FDA-Public Use
  Company Number: GB-BAXTER-2013BAX030721

PATIENT
  Sex: 0

DRUGS (1)
  1. AERRANE (ISOFLURANE) [Suspect]
     Indication: STATUS EPILEPTICUS

REACTIONS (1)
  - Nervous system disorder [Unknown]
